FAERS Safety Report 6153584-X (Version None)
Quarter: 2009Q2

REPORT INFORMATION
  Report Type: 
  Country: None (occurrence: None)
  Receive Date: 20090409
  Receipt Date: 20090319
  Transmission Date: 20091009
  Serious: Yes (Hospitalization, Other)
  Sender: FDA-Public Use
  Company Number: JPI-P-004666

PATIENT
  Age: 86 Year
  Sex: Female

DRUGS (10)
  1. LUVOX [Suspect]
     Indication: DEPRESSION
     Dosage: (25 MG,1 D),ORAL ; (50 MG,1 D), ORAL
     Route: 048
     Dates: start: 20080716, end: 20080728
  2. LUVOX [Suspect]
     Indication: DEPRESSION
     Dosage: (25 MG,1 D),ORAL ; (50 MG,1 D), ORAL
     Route: 048
     Dates: start: 20080729, end: 20080830
  3. IMIDAPRIL HYDROCHLORIDE [Concomitant]
  4. CARVEDILOL [Concomitant]
  5. OMEPRAZOLE [Concomitant]
  6. BROTIZOLAM [Concomitant]
  7. WARFARIN SODIUM [Concomitant]
  8. LOXOPROFEN SODIUM [Concomitant]
  9. PANTETHINE [Concomitant]
  10. MAGNESIUM OXIDE [Concomitant]

REACTIONS (4)
  - ANOREXIA [None]
  - DYSSTASIA [None]
  - INAPPROPRIATE ANTIDIURETIC HORMONE SECRETION [None]
  - SEDATION [None]
